FAERS Safety Report 7926704-1 (Version None)
Quarter: 2011Q4

REPORT INFORMATION
  Report Type: 
  Country: None (occurrence: None)
  Receive Date: 20111116
  Receipt Date: 20111102
  Transmission Date: 20120403
  Serious: Yes (Hospitalization, Disabling, Other)
  Sender: FDA-Public Use
  Company Number: 2011MA015931

PATIENT
  Age: 71 Year
  Sex: Female

DRUGS (60)
  1. GUAIFENESIN [Concomitant]
  2. PROTONIX [Concomitant]
  3. TOFRANIL-PM [Concomitant]
  4. AMOXICILLIN [Concomitant]
  5. TRIMETHOPRIM + SULFAMETHOXAZOLE [Concomitant]
  6. NASONEX [Concomitant]
  7. ACYCLOVIR [Concomitant]
  8. MAGNESIUM OXIDE [Concomitant]
  9. SPIRONOLACTONE [Concomitant]
  10. DILTIAZEM HCL [Concomitant]
  11. COMBIVENT [Concomitant]
  12. THEOPHYLLINE [Concomitant]
  13. TRIAMTERENE AND HYDROCHLOROTHIAZIDE [Concomitant]
  14. FLOVENT [Concomitant]
  15. GLIPIZIDE [Concomitant]
  16. PROPOXYPHENE HYDROCHLORIDE [Concomitant]
  17. PRILOSEC [Concomitant]
  18. ZEGERID [Concomitant]
  19. LORAZEPAM [Concomitant]
  20. UNASYN [Concomitant]
  21. ALBUTEROL [Concomitant]
  22. PAXIL [Concomitant]
  23. DYAZIDE [Concomitant]
  24. IBUPROFEN [Concomitant]
  25. DOXYCYCLINE [Concomitant]
  26. EPIPEN [Concomitant]
  27. PROCTOSOL HC [Concomitant]
  28. LYRICA [Concomitant]
  29. CEPHALEXIN [Concomitant]
  30. SULFAMETHOXAZOLE AND TRIMETHOPRIM [Concomitant]
  31. ADVAIR DISKUS 100/50 [Concomitant]
  32. ZOLPIDEM [Concomitant]
  33. LASIX [Concomitant]
  34. MAXZIDE [Concomitant]
  35. DITROPAN [Concomitant]
  36. OXYTROL [Concomitant]
  37. BENZONATATE [Concomitant]
  38. ZOLOFT [Concomitant]
  39. ACETAMINOPHEN [Concomitant]
  40. MILK OF MAGNESIA TAB [Concomitant]
  41. CIPROFLOXACIN [Concomitant]
  42. HYDROCODONE BITARTRATE [Concomitant]
  43. FLUTICASONE PROPIONATE [Concomitant]
  44. DIGOXIN [Suspect]
     Indication: ARRHYTHMIA SUPRAVENTRICULAR
     Dosage: 0.125 MG;QD;PO
     Route: 048
     Dates: start: 20020808, end: 20081201
  45. DIGOXIN [Suspect]
     Indication: ATRIAL FIBRILLATION
     Dosage: 0.125 MG;QD;PO
     Route: 048
     Dates: start: 20020808, end: 20081201
  46. NASACORT AQ [Concomitant]
  47. DETROL LA [Concomitant]
  48. NYSTATIN [Concomitant]
  49. OXYCODONE HCL AND ACETAMINOPHEN [Concomitant]
  50. AZITHROMYCIN [Concomitant]
  51. FERROUS SULFATE TAB [Concomitant]
  52. CYCLOBENZAPRINE [Concomitant]
  53. POTASSIUM CHLORIDE [Concomitant]
  54. RANITIDINE [Concomitant]
  55. PHENAZOPYRIDINE HCL TAB [Concomitant]
  56. VENTOLIN HFA [Concomitant]
  57. DALMANE [Concomitant]
  58. PROCHLORPERAZINE [Concomitant]
  59. PROMETHAZINE VC PLAIN [Concomitant]
  60. MUCINEX DM [Concomitant]

REACTIONS (57)
  - DYSPNOEA [None]
  - CHRONIC OBSTRUCTIVE PULMONARY DISEASE [None]
  - COUGH [None]
  - THROMBOSIS [None]
  - SCOTOMA [None]
  - BLOOD POTASSIUM DECREASED [None]
  - BLOOD ACID PHOSPHATASE INCREASED [None]
  - DIZZINESS [None]
  - LOCAL SWELLING [None]
  - DEPRESSION [None]
  - CARDIAC FAILURE CONGESTIVE [None]
  - HYPERHIDROSIS [None]
  - BLINDNESS TRANSIENT [None]
  - BLOOD UREA NITROGEN/CREATININE RATIO INCREASED [None]
  - PROTEIN TOTAL DECREASED [None]
  - ERYTHEMA [None]
  - LYMPHOEDEMA [None]
  - EYE PAIN [None]
  - SYNCOPE [None]
  - SPUTUM RETENTION [None]
  - DEAFNESS [None]
  - PCO2 INCREASED [None]
  - CARDIOACTIVE DRUG LEVEL BELOW THERAPEUTIC [None]
  - SALIVARY GLAND ENLARGEMENT [None]
  - ANAEMIA [None]
  - BLOOD UREA INCREASED [None]
  - PAIN [None]
  - ANXIETY [None]
  - UNEVALUABLE EVENT [None]
  - CELLULITIS [None]
  - URINARY TRACT INFECTION [None]
  - FOOD ALLERGY [None]
  - HERPES ZOSTER [None]
  - BACK PAIN [None]
  - SPINAL COLUMN STENOSIS [None]
  - ECONOMIC PROBLEM [None]
  - NAUSEA [None]
  - CARDIAC DISORDER [None]
  - OEDEMA PERIPHERAL [None]
  - INTERVERTEBRAL DISC PROTRUSION [None]
  - HEADACHE [None]
  - CAROTID ARTERY INSUFFICIENCY [None]
  - HEART INJURY [None]
  - PAIN IN EXTREMITY [None]
  - FILARIASIS [None]
  - LOWER EXTREMITY MASS [None]
  - MALAISE [None]
  - TEMPORAL ARTERITIS [None]
  - CAROTID BRUIT [None]
  - BLOOD ALBUMIN DECREASED [None]
  - NEPHROLITHIASIS [None]
  - INTERVERTEBRAL DISC DEGENERATION [None]
  - HYPOTENSION [None]
  - CONDITION AGGRAVATED [None]
  - BLOOD GLUCOSE INCREASED [None]
  - BLOOD CHLORIDE DECREASED [None]
  - WHITE BLOOD CELL COUNT INCREASED [None]
